FAERS Safety Report 15846734 (Version 1)
Quarter: 2019Q1

REPORT INFORMATION
  Report Type: Spontaneous
  Country: US (occurrence: US)
  Receive Date: 20190121
  Receipt Date: 20190121
  Transmission Date: 20190417
  Serious: No
  Sender: FDA-Public Use
  Company Number: US-DSJP-DSU-2017-145005

PATIENT

DRUGS (2)
  1. BENICAR HCT [Suspect]
     Active Substance: HYDROCHLOROTHIAZIDE\OLMESARTAN MEDOXOMIL
     Indication: PRODUCT USED FOR UNKNOWN INDICATION
     Dosage: 20-12.5 MG, QD
     Route: 048
     Dates: start: 20060201, end: 20131001
  2. BENICAR [Suspect]
     Active Substance: OLMESARTAN MEDOXOMIL
     Indication: PRODUCT USED FOR UNKNOWN INDICATION
     Dosage: UNK, QD
     Route: 048
     Dates: start: 20060201, end: 20131001

REACTIONS (10)
  - Hiatus hernia [Not Recovered/Not Resolved]
  - Diverticulum [Unknown]
  - Coeliac disease [Recovering/Resolving]
  - Cholelithiasis [Unknown]
  - Gastrooesophageal reflux disease [Not Recovered/Not Resolved]
  - Large intestine polyp [Recovered/Resolved]
  - Constipation [Unknown]
  - Gastric polyps [Recovered/Resolved]
  - Rectal polyp [Recovered/Resolved]
  - Sprue-like enteropathy [Unknown]

NARRATIVE: CASE EVENT DATE: 20060301
